FAERS Safety Report 7769407-9 (Version None)
Quarter: 2011Q3

REPORT INFORMATION
  Report Type: 
  Country: None (occurrence: None)
  Receive Date: 20110922
  Receipt Date: 20101207
  Transmission Date: 20111222
  Serious: No
  Sender: FDA-Public Use
  Company Number: US-ASTRAZENECA-2010SE58197

PATIENT
  Age: 40 Year
  Sex: Female
  Weight: 25.4 kg

DRUGS (7)
  1. SEROQUEL XR [Suspect]
     Dosage: IF THE PATIENT UNABLE TO SLEEP SHE CAN TAKE 2 MORE 400 MG TABLETS
     Route: 048
     Dates: start: 20100101
  2. SEROQUEL XR [Suspect]
     Indication: RESTLESSNESS
     Route: 048
     Dates: start: 20100101
  3. ESTRADIOL [Concomitant]
     Indication: PREMATURE MENOPAUSE
  4. SEROQUEL XR [Suspect]
     Dosage: IF THE PATIENT UNABLE TO SLEEP SHE CAN TAKE 2 MORE 400 MG TABLETS
     Route: 048
     Dates: start: 20100101
  5. SEROQUEL XR [Suspect]
     Indication: INSOMNIA
     Route: 048
     Dates: start: 20100101
  6. SEROQUEL XR [Suspect]
     Indication: DEPRESSION
     Route: 048
     Dates: start: 20100101
  7. SEROQUEL XR [Suspect]
     Dosage: IF THE PATIENT UNABLE TO SLEEP SHE CAN TAKE 2 MORE 400 MG TABLETS
     Route: 048
     Dates: start: 20100101

REACTIONS (3)
  - ARTHRALGIA [None]
  - INTENTIONAL DRUG MISUSE [None]
  - MUSCULOSKELETAL STIFFNESS [None]
